FAERS Safety Report 8490415-7 (Version None)
Quarter: 2012Q3

REPORT INFORMATION
  Report Type: 
  Country: None (occurrence: None)
  Receive Date: 20120705
  Receipt Date: 20120629
  Transmission Date: 20120928
  Serious: Yes (Other)
  Sender: FDA-Public Use
  Company Number: US-JNJFOC-20120700639

PATIENT
  Sex: Female
  Weight: 81.65 kg

DRUGS (1)
  1. ORTHO EVRA [Suspect]
     Indication: CONTRACEPTION
     Dosage: REMOVED PATCH ON 21-JUN-2012
     Route: 062
     Dates: start: 20120201

REACTIONS (2)
  - POSTPARTUM DEPRESSION [None]
  - MENSTRUATION DELAYED [None]
